FAERS Safety Report 22270682 (Version 1)
Quarter: 2023Q2

REPORT INFORMATION
  Report Type: Spontaneous
  Country: US (occurrence: None)
  Receive Date: 20230428
  Receipt Date: 20230428
  Transmission Date: 20230722
  Serious: Yes (Other)
  Sender: FDA-Public Use
  Company Number: None

PATIENT
  Age: 37 Year
  Sex: Female
  Weight: 132 kg

DRUGS (1)
  1. EMGALITY [Suspect]
     Active Substance: GALCANEZUMAB-GNLM
     Indication: Migraine with aura
     Dosage: FREQUENCY : MONTHLY;?
     Route: 058
     Dates: start: 20211104, end: 20230421

REACTIONS (5)
  - Migraine [None]
  - Depression [None]
  - Suicidal ideation [None]
  - Condition aggravated [None]
  - Death of relative [None]

NARRATIVE: CASE EVENT DATE: 20230421
